FAERS Safety Report 5934871-4 (Version None)
Quarter: 2008Q4

REPORT INFORMATION
  Report Type: 
  Country: None (occurrence: None)
  Receive Date: 20081027
  Receipt Date: 20081017
  Transmission Date: 20090506
  Serious: Yes (Hospitalization)
  Sender: FDA-Public Use
  Company Number: 2008BI028019

PATIENT
  Age: 58 Year
  Sex: Female

DRUGS (2)
  1. AVONEX [Suspect]
     Indication: MULTIPLE SCLEROSIS
     Dosage: IM : 30 UG;QW;IM
     Route: 030
  2. .. [Concomitant]

REACTIONS (2)
  - INCISIONAL HERNIA [None]
  - NONSPECIFIC REACTION [None]
